FAERS Safety Report 9551417 (Version 1)
Quarter: 2013Q2

REPORT INFORMATION
  Report Type: Spontaneous
  Country: US (occurrence: None)
  Receive Date: 20130627
  Receipt Date: 20130627
  Transmission Date: 20140414
  Serious: No
  Sender: FDA-Public Use
  Company Number: 1000045221

PATIENT
  Sex: Female

DRUGS (1)
  1. LINZESS [Suspect]
     Dosage: 290 MCG ( 290 MCG, 1 IN 1 D) , ORAL
     Route: 048

REACTIONS (3)
  - Palpitations [None]
  - Vomiting [None]
  - Nausea [None]
